FAERS Safety Report 8776233 (Version 1)
Quarter: 2012Q4

REPORT INFORMATION
  Report Type: 
  Country: US (occurrence: MW)
  Receive Date: 20120910
  Receipt Date: 20120910
  Transmission Date: 20130627
  Serious: Yes (Other)
  Sender: FDA-Public Use
  Company Number: MW-B.I. PHARMACEUTICALS,INC./RIDGEFIELD-2012-EU-04298GD

PATIENT
  Age: 1 Month

DRUGS (9)
  1. NEVIRAPINE [Suspect]
     Indication: HUMAN IMMUNODEFICIENCY VIRUS TRANSMISSION
     Route: 064
  2. NEVIRAPINE [Suspect]
     Indication: PROPHYLAXIS
     Dosage: 2 mg/kg
     Route: 048
     Dates: start: 20040708
  3. NEVIRAPINE [Suspect]
     Dosage: increasing dose schedule: 10 mg/d in the first 2 weeks, 20 mg/d weeks 3-18, and 30 mg/d weeks 19-28
     Route: 048
  4. ZIDOVUDINE [Concomitant]
     Indication: HUMAN IMMUNODEFICIENCY VIRUS TRANSMISSION
     Dosage: 2 mg/kg
     Route: 048
  5. ZIDOVUDINE [Concomitant]
     Indication: PROPHYLAXIS
  6. LAMIVUDINE [Concomitant]
     Indication: HUMAN IMMUNODEFICIENCY VIRUS TRANSMISSION
     Dosage: 4 mg/kg
     Route: 048
  7. LAMIVUDINE [Concomitant]
     Indication: PROPHYLAXIS
  8. COMBIVIR [Concomitant]
     Indication: HUMAN IMMUNODEFICIENCY VIRUS TRANSMISSION
     Route: 063
  9. COMBIVIR [Concomitant]
     Indication: PROPHYLAXIS

REACTIONS (3)
  - Drug hypersensitivity [Unknown]
  - Rash [Unknown]
  - Hepatomegaly [Unknown]
